FAERS Safety Report 11637420 (Version 3)
Quarter: 2016Q1

REPORT INFORMATION
  Report Type: Spontaneous
  Country: US (occurrence: US)
  Receive Date: 20151016
  Receipt Date: 20160114
  Transmission Date: 20160525
  Serious: Yes (Other)
  Sender: FDA-Public Use
  Company Number: US-PFIZER INC-2015315704

PATIENT
  Age: 68 Year
  Sex: Female
  Weight: 66.21 kg

DRUGS (2)
  1. IBRANCE [Suspect]
     Active Substance: PALBOCICLIB
     Indication: BREAST CANCER
     Dosage: 75 MG CYCLIC (DAY 1-21, EVERY 28 DAYS)
     Route: 048
     Dates: start: 20150830, end: 2015
  2. IBRANCE [Suspect]
     Active Substance: PALBOCICLIB
     Dosage: 125 MG, CYCLIC (DAY 1-21 Q 28 DAYS)
     Route: 048
     Dates: start: 2015, end: 20151101

REACTIONS (3)
  - Tumour marker increased [Unknown]
  - Liver function test increased [Unknown]
  - Constipation [Unknown]

NARRATIVE: CASE EVENT DATE: 20150918
